FAERS Safety Report 11890340 (Version 8)
Quarter: 2016Q3

REPORT INFORMATION
  Report Type: Spontaneous
  Country: US (occurrence: US)
  Receive Date: 20160105
  Receipt Date: 20160711
  Transmission Date: 20161109
  Serious: Yes (Other)
  Sender: FDA-Public Use
  Company Number: US-GLAXOSMITHKLINE-US2015183844

PATIENT
  Sex: Female
  Weight: 68.27 kg

DRUGS (5)
  1. REQUIP XL [Suspect]
     Active Substance: ROPINIROLE HYDROCHLORIDE
     Dosage: 6 MG, UNK
  2. ROPINIROLE HYDROCHLORIDE. [Suspect]
     Active Substance: ROPINIROLE HYDROCHLORIDE
     Indication: PARKINSON^S DISEASE
     Dosage: UNK
     Dates: end: 201408
  3. REQUIP XL [Suspect]
     Active Substance: ROPINIROLE HYDROCHLORIDE
     Dosage: 8 MG, UNK
  4. REQUIP XL [Suspect]
     Active Substance: ROPINIROLE HYDROCHLORIDE
     Indication: PARKINSON^S DISEASE
     Dosage: 4 MG, QD
     Route: 048
     Dates: start: 201011, end: 2014
  5. AMANTADINE HYDROCHLORIDE. [Concomitant]
     Active Substance: AMANTADINE HYDROCHLORIDE
     Dosage: UNK

REACTIONS (30)
  - Adverse drug reaction [Unknown]
  - Ill-defined disorder [Unknown]
  - Hallucination, visual [Unknown]
  - Vomiting [Unknown]
  - Withdrawal syndrome [Unknown]
  - Obsessive-compulsive disorder [Unknown]
  - Gambling disorder [Unknown]
  - Crying [Unknown]
  - Abnormal behaviour [Unknown]
  - Parkinson^s disease [Not Recovered/Not Resolved]
  - Suicidal ideation [Unknown]
  - Gambling [Recovered/Resolved]
  - Stress [Unknown]
  - Mental disorder [Unknown]
  - Panic attack [Unknown]
  - Tremor [Unknown]
  - Product label issue [Unknown]
  - Hallucination, auditory [Unknown]
  - Asthenia [Unknown]
  - Drug ineffective [Unknown]
  - Drug dose omission [Unknown]
  - Thinking abnormal [Unknown]
  - Hallucination [Unknown]
  - Insomnia [Unknown]
  - Economic problem [Unknown]
  - Fear [Unknown]
  - Malaise [Unknown]
  - Emotional distress [Unknown]
  - Headache [Unknown]
  - Depression [Recovering/Resolving]
